FAERS Safety Report 15080972 (Version 1)
Quarter: 2018Q2

REPORT INFORMATION
  Report Type: Spontaneous
  Country: US (occurrence: US)
  Receive Date: 20180628
  Receipt Date: 20180628
  Transmission Date: 20180711
  Serious: No
  Sender: FDA-Public Use
  Company Number: US-GLENMARK PHARMACEUTICALS-2018GMK032421

PATIENT

DRUGS (3)
  1. OMEPRAZOLE. [Suspect]
     Active Substance: OMEPRAZOLE
     Indication: GASTROOESOPHAGEAL REFLUX DISEASE
     Dosage: UNK
     Route: 065
  2. LOSARTAN. [Concomitant]
     Active Substance: LOSARTAN
     Indication: HYPERTENSION
     Dosage: 1 DF, QD
     Route: 065
  3. OXYBUTYNIN. [Concomitant]
     Active Substance: OXYBUTYNIN CHLORIDE
     Indication: AUTOMATIC BLADDER
     Dosage: 1 DF, QD
     Route: 065

REACTIONS (9)
  - Crying [Unknown]
  - Thinking abnormal [Unknown]
  - Somnolence [Unknown]
  - Depression [Unknown]
  - Panic attack [Unknown]
  - Confusional state [Unknown]
  - Adverse drug reaction [Unknown]
  - Nightmare [Unknown]
  - Feeling abnormal [Unknown]
